FAERS Safety Report 5777122-6 (Version None)
Quarter: 2008Q2

REPORT INFORMATION
  Report Type: 
  Country: None (occurrence: None)
  Receive Date: 20080616
  Receipt Date: 20080602
  Transmission Date: 20081010
  Serious: Yes (Hospitalization)
  Sender: FDA-Public Use
  Company Number: 100#08#2008-02767

PATIENT
  Age: 39 Year
  Sex: Male

DRUGS (7)
  1. SALBUTAMOL (SALBUTAMOL) [Suspect]
     Indication: INHALATION THERAPY
  2. SALBUTAMOL (SALBUTAMOL) [Suspect]
     Indication: RESPIRATORY DISORDER
  3. PREDNISOLONE [Concomitant]
  4. AMOXICILLIN [Concomitant]
  5. IPRATROPIUM BROMIDE [Concomitant]
  6. HYDROCORTISONE [Concomitant]
  7. MAGNESIUM SULFATE (MAGNESIUM) [Concomitant]

REACTIONS (10)
  - ANAEMIA [None]
  - CARDIAC FAILURE HIGH OUTPUT [None]
  - GENERAL PHYSICAL HEALTH DETERIORATION [None]
  - HYPERCAPNIA [None]
  - LACTIC ACIDOSIS [None]
  - OVERDOSE [None]
  - RESPIRATORY ACIDOSIS [None]
  - RESPIRATORY FAILURE [None]
  - SELF-MEDICATION [None]
  - THERAPEUTIC AGENT TOXICITY [None]
